FAERS Safety Report 22617652 (Version 2)
Quarter: 2024Q3

REPORT INFORMATION
  Report Type: Report from Study
  Country: KR (occurrence: KR)
  Receive Date: 20230620
  Receipt Date: 20240712
  Transmission Date: 20241016
  Serious: No
  Sender: PIERRE FABRE MEDICAMENT
  Company Number: KR-PFM-2022-05321

PATIENT

DRUGS (2)
  1. PROPRANOLOL HYDROCHLORIDE [Suspect]
     Active Substance: PROPRANOLOL HYDROCHLORIDE
     Indication: Supraventricular tachycardia
     Dosage: UNK
     Route: 065
  2. PROPRANOLOL HYDROCHLORIDE [Suspect]
     Active Substance: PROPRANOLOL HYDROCHLORIDE
     Indication: Off label use

REACTIONS (4)
  - Product use in unapproved indication [Unknown]
  - Product administered to patient of inappropriate age [Unknown]
  - Product use issue [Unknown]
  - Off label use [Unknown]
